FAERS Safety Report 16740504 (Version 2)
Quarter: 2019Q4

REPORT INFORMATION
  Report Type: Report from Study
  Country: US (occurrence: US)
  Receive Date: 20190826
  Receipt Date: 20191014
  Transmission Date: 20200122
  Serious: Yes (Death, Hospitalization)
  Sender: FDA-Public Use
  Company Number: US-BAYER-2019-002183

PATIENT
  Age: 62 Year
  Sex: Female

DRUGS (18)
  1. RYTHMOL [Concomitant]
     Active Substance: PROPAFENONE HYDROCHLORIDE
     Dosage: UNK
  2. CALCIUM CARBONATE. [Concomitant]
     Active Substance: CALCIUM CARBONATE
     Dosage: 500 MG, BID
     Route: 048
     Dates: start: 20190116
  3. POTASSIUM CHLORIDE. [Concomitant]
     Active Substance: POTASSIUM CHLORIDE
     Dosage: 20 MEQ, BID
     Route: 048
  4. LONSURF [Concomitant]
     Active Substance: TIPIRACIL HYDROCHLORIDE\TRIFLURIDINE
     Dosage: UNK
  5. PROPAFENONE. [Concomitant]
     Active Substance: PROPAFENONE
     Dosage: 150 MG, TID
     Route: 048
  6. STIVARGA [Suspect]
     Active Substance: REGORAFENIB
     Indication: COLORECTAL CANCER METASTATIC
     Dosage: 80 MG, QD FOR 21 DAYS ON AND 7 DAYS OFF
     Route: 048
     Dates: start: 20181213
  7. VITAMIN B6 [Concomitant]
     Active Substance: PYRIDOXINE HYDROCHLORIDE
     Dosage: UNK
  8. PROCHLORPERAZINE. [Concomitant]
     Active Substance: PROCHLORPERAZINE
     Indication: NAUSEA
     Dosage: 10 MG, EVERY SIX HOURS AS NEEDED
     Route: 048
     Dates: start: 20170207
  9. ELIQUIS [Concomitant]
     Active Substance: APIXABAN
     Dosage: 2.5 MG, BID
  10. VITAMIN D3 [Concomitant]
     Active Substance: CHOLECALCIFEROL
     Dosage: UNK
  11. PANTOPRAZOLE [Concomitant]
     Active Substance: PANTOPRAZOLE
     Dosage: 40 MG VERY MORNING BEFORE BREAKFAST
     Dates: start: 20190130
  12. METOPROLOL TARTRATE. [Concomitant]
     Active Substance: METOPROLOL TARTRATE
     Dosage: 25 MG DAILY
     Dates: start: 20190221
  13. ASCORBIC ACID. [Concomitant]
     Active Substance: ASCORBIC ACID
     Dosage: UNK
  14. PROCHLORPERAZINE. [Concomitant]
     Active Substance: PROCHLORPERAZINE
     Indication: VOMITING
  15. AUGMENTIN [Concomitant]
     Active Substance: AMOXICILLIN\CLAVULANATE POTASSIUM
     Dosage: ONE TABLET TWO TIMES A DAY FOR 13 DAYS
     Dates: start: 20190228, end: 20190307
  16. LEVOTHYROXINE. [Concomitant]
     Active Substance: LEVOTHYROXINE
     Dosage: 137 MCG
     Route: 048
     Dates: start: 20180803
  17. MAGNESIUM OXIDE. [Concomitant]
     Active Substance: MAGNESIUM OXIDE
     Dosage: 400 MG
     Route: 048
  18. LOVENOX [Concomitant]
     Active Substance: ENOXAPARIN SODIUM
     Dosage: UNK

REACTIONS (19)
  - Enzyme level increased [None]
  - Nausea [None]
  - Fatigue [None]
  - Abdominal distension [None]
  - Blood bilirubin increased [None]
  - Respiratory arrest [Fatal]
  - Metastases to lung [Fatal]
  - Metastases to liver [Fatal]
  - Blood count abnormal [Not Recovered/Not Resolved]
  - Skin discolouration [None]
  - Intestinal obstruction [Not Recovered/Not Resolved]
  - Pyrexia [None]
  - Off label use [None]
  - Abdominal pain [None]
  - Jaundice [Not Recovered/Not Resolved]
  - Colorectal cancer [Fatal]
  - Infection [Not Recovered/Not Resolved]
  - Diarrhoea [None]
  - Appetite disorder [None]

NARRATIVE: CASE EVENT DATE: 20190101
